FAERS Safety Report 7993596-4 (Version None)
Quarter: 2011Q4

REPORT INFORMATION
  Report Type: 
  Country: None (occurrence: None)
  Receive Date: 20111219
  Receipt Date: 20111213
  Transmission Date: 20120403
  Serious: Yes (Hospitalization)
  Sender: FDA-Public Use
  Company Number: US-MERCK-1112USA01726

PATIENT
  Age: 7 Year
  Sex: Female

DRUGS (1)
  1. SINGULAIR [Suspect]
     Indication: ASTHMA
     Route: 048
     Dates: start: 20100101

REACTIONS (5)
  - ASTHMA [None]
  - SOMNAMBULISM [None]
  - HALLUCINATION [None]
  - RESTLESSNESS [None]
  - UNDERDOSE [None]
